FAERS Safety Report 5356044-9 (Version None)
Quarter: 2007Q2

REPORT INFORMATION
  Report Type: 
  Country: None (occurrence: None)
  Receive Date: 20070613
  Receipt Date: 20070606
  Transmission Date: 20071010
  Serious: Yes (Death)
  Sender: FDA-Public Use
  Company Number: US-GENENTECH-241648

PATIENT
  Age: 30 Year
  Sex: Female

DRUGS (9)
  1. RITUXAN [Suspect]
     Indication: SYSTEMIC LUPUS ERYTHEMATOSUS
     Dosage: 500 MG, UNK
     Route: 042
     Dates: start: 20070511
  2. SOLU-MEDROL [Concomitant]
     Indication: PREMEDICATION
     Dosage: 100 MG, SINGLE
     Route: 042
     Dates: start: 20070511
  3. BENADRYL [Concomitant]
     Indication: PREMEDICATION
     Dosage: 25 MG, SINGLE
     Route: 042
     Dates: start: 20070511
  4. PLAQUENIL [Concomitant]
     Indication: DRUG USE FOR UNKNOWN INDICATION
  5. OXYGEN [Concomitant]
     Indication: DRUG USE FOR UNKNOWN INDICATION
  6. TRANSFUSION NOS [Concomitant]
     Indication: DRUG USE FOR UNKNOWN INDICATION
  7. DILTIAZEM [Concomitant]
     Indication: DRUG USE FOR UNKNOWN INDICATION
  8. ZOSYN [Concomitant]
     Indication: DRUG USE FOR UNKNOWN INDICATION
  9. PROTONIX [Concomitant]
     Indication: DRUG USE FOR UNKNOWN INDICATION

REACTIONS (6)
  - CARDIO-RESPIRATORY ARREST [None]
  - DEATH [None]
  - HYPOTENSION [None]
  - NODAL ARRHYTHMIA [None]
  - PULMONARY EMBOLISM [None]
  - SINUS TACHYCARDIA [None]
